FAERS Safety Report 15411540 (Version 1)
Quarter: 2018Q3

REPORT INFORMATION
  Report Type: Spontaneous
  Country: US (occurrence: US)
  Receive Date: 20180920
  Receipt Date: 20180920
  Transmission Date: 20181010
  Serious: No
  Sender: FDA-Public Use
  Company Number: None

PATIENT
  Age: 65 Year
  Sex: Female
  Weight: 68.04 kg

DRUGS (1)
  1. VALSARTIN?HCTZ [Suspect]
     Active Substance: HYDROCHLOROTHIAZIDE\VALSARTAN
     Indication: HYPERTENSION
     Dosage: ?          QUANTITY:1 DAILY;?
     Route: 048
     Dates: start: 201702

REACTIONS (2)
  - Vomiting [None]
  - Lung neoplasm malignant [None]

NARRATIVE: CASE EVENT DATE: 20170728
